FAERS Safety Report 14888604 (Version 4)
Quarter: 2021Q4

REPORT INFORMATION
  Report Type: Report from Study
  Country: NL (occurrence: NL)
  Receive Date: 20180513
  Receipt Date: 20211208
  Transmission Date: 20220303
  Serious: No
  Sender: FDA-Public Use
  Company Number: NL-ABBVIE-18K-114-2344411-00

PATIENT
  Age: 71 Year
  Sex: Male
  Weight: 84 kg

DRUGS (6)
  1. CARBIDOPA\LEVODOPA [Suspect]
     Active Substance: CARBIDOPA\LEVODOPA
     Indication: Parkinson^s disease
     Dosage: MD 4.0, CD 1.9, ED 1.0
     Route: 050
     Dates: start: 20180423, end: 2018
  2. CARBIDOPA\LEVODOPA [Suspect]
     Active Substance: CARBIDOPA\LEVODOPA
     Dosage: MD: 7 CD: 1,9 ED: 1
     Route: 050
     Dates: start: 2018
  3. CARBIDOPA\LEVODOPA [Suspect]
     Active Substance: CARBIDOPA\LEVODOPA
     Dosage: MD: 7, CD: 1.9, ED: 1
     Route: 050
  4. CARBIDOPA\LEVODOPA [Suspect]
     Active Substance: CARBIDOPA\LEVODOPA
     Dosage: MORNING DOSE 7.0 CONTINUOUS DOSE 1.9 EXTRA DOSE 1.3
     Route: 050
  5. CARBIDOPA\LEVODOPA [Suspect]
     Active Substance: CARBIDOPA\LEVODOPA
     Dosage: MD 5,5 CD 1,9 ED 1,3 NIGHT CD 1,3 ED 1,3,
     Route: 050
  6. CARBIDOPA\LEVODOPA [Suspect]
     Active Substance: CARBIDOPA\LEVODOPA
     Dosage: MD: 5.5ML, CD: 1.9ML/H, ED: 1.3ML, CDN: 1.3ML/H, END: 1.3ML
     Route: 050

REACTIONS (38)
  - Memory impairment [Not Recovered/Not Resolved]
  - Thinking abnormal [Not Recovered/Not Resolved]
  - Unintentional medical device removal [Unknown]
  - Embedded device [Unknown]
  - Device connection issue [Unknown]
  - Reduced facial expression [Not Recovered/Not Resolved]
  - Wheelchair user [Not Recovered/Not Resolved]
  - Speech disorder [Not Recovered/Not Resolved]
  - General physical condition abnormal [Not Recovered/Not Resolved]
  - Emotional distress [Not Recovered/Not Resolved]
  - General physical health deterioration [Not Recovered/Not Resolved]
  - Middle insomnia [Recovered/Resolved]
  - Restlessness [Not Recovered/Not Resolved]
  - Parkinson^s disease [Recovered/Resolved]
  - Pain [Recovering/Resolving]
  - Gait disturbance [Not Recovered/Not Resolved]
  - Fatigue [Not Recovered/Not Resolved]
  - Hallucination [Not Recovered/Not Resolved]
  - Drug hypersensitivity [Not Recovered/Not Resolved]
  - Confusional state [Recovered/Resolved]
  - Bradykinesia [Not Recovered/Not Resolved]
  - Therapeutic product effect delayed [Recovered/Resolved]
  - Depression [Not Recovered/Not Resolved]
  - Drug ineffective [Recovered/Resolved]
  - Nausea [Not Recovered/Not Resolved]
  - Freezing phenomenon [Not Recovered/Not Resolved]
  - Muscle rigidity [Not Recovered/Not Resolved]
  - Therapeutic product effect delayed [Recovered/Resolved]
  - On and off phenomenon [Not Recovered/Not Resolved]
  - Infrequent bowel movements [Recovering/Resolving]
  - Cognitive disorder [Unknown]
  - Stoma site discharge [Recovered/Resolved]
  - Therapeutic product effect variable [Recovered/Resolved]
  - Dementia [Not Recovered/Not Resolved]
  - Loss of personal independence in daily activities [Not Recovered/Not Resolved]
  - Stoma site erythema [Recovered/Resolved]
  - Hypersomnia [Recovered/Resolved]
  - Parkinson^s disease [Recovered/Resolved]

NARRATIVE: CASE EVENT DATE: 20180428
